FAERS Safety Report 6932712-X (Version None)
Quarter: 2010Q3

REPORT INFORMATION
  Report Type: 
  Country: None (occurrence: None)
  Receive Date: 20100819
  Receipt Date: 20100816
  Transmission Date: 20110219
  Serious: Yes (Other)
  Sender: FDA-Public Use
  Company Number: US-JNJFOC-20100805496

PATIENT
  Weight: 19.96 kg

DRUGS (2)
  1. CHILDREN'S MOTRIN [Suspect]
     Route: 065
  2. CHILDREN'S MOTRIN [Suspect]
     Indication: PYREXIA
     Route: 065

REACTIONS (4)
  - CROHN'S DISEASE [None]
  - HAEMATURIA [None]
  - PRODUCT QUALITY ISSUE [None]
  - WEIGHT DECREASED [None]
